FAERS Safety Report 4953790-3 (Version None)
Quarter: 2006Q1

REPORT INFORMATION
  Report Type: 
  Country: None (occurrence: None)
  Receive Date: 20060327
  Receipt Date: 20060220
  Transmission Date: 20060701
  Serious: Yes (Hospitalization)
  Sender: FDA-Public Use
  Company Number: FRWYE410620FEB06

PATIENT
  Sex: Male
  Weight: 102 kg

DRUGS (12)
  1. ENBREL [Suspect]
     Indication: WEGENER'S GRANULOMATOSIS
     Route: 058
     Dates: start: 20040115, end: 20040715
  2. CORTANCYL [Concomitant]
     Dosage: 20 MG TOTAL DAILY
     Route: 048
     Dates: start: 19890101
  3. CALCIUM CARBONATE [Concomitant]
     Dosage: UNKNOWN
     Route: 048
  4. COLECALCIFEROL [Concomitant]
     Dosage: UNKNOWN
     Route: 048
  5. FOSAMAX [Concomitant]
     Dosage: UNKNOWN
     Route: 048
  6. BACTRIM [Concomitant]
     Dosage: UNKNOWN
  7. ZITHROMAX [Concomitant]
     Dosage: UNKNOWN
     Route: 048
  8. COZAAR [Concomitant]
     Dosage: UNKNOWN
     Route: 048
  9. HYPERIUM [Concomitant]
     Dosage: UNKNOWN
     Route: 048
  10. PRAZEPAM [Concomitant]
     Dosage: UNKNOWN
     Route: 048
  11. COSOPT [Concomitant]
     Dosage: UNKNOWN
  12. PANTOPRAZOLE [Concomitant]
     Dosage: UNKNOWN

REACTIONS (10)
  - CONDITION AGGRAVATED [None]
  - DRUG INEFFECTIVE [None]
  - EPISTAXIS [None]
  - EYE DISCHARGE [None]
  - EYE HAEMORRHAGE [None]
  - HAEMATOMA [None]
  - SINUSITIS [None]
  - SUPERINFECTION [None]
  - TYMPANIC MEMBRANE PERFORATION [None]
  - WEGENER'S GRANULOMATOSIS [None]
